FAERS Safety Report 6807249-9 (Version None)
Quarter: 2010Q2

REPORT INFORMATION
  Report Type: 
  Country: None (occurrence: None)
  Receive Date: 20100629
  Receipt Date: 20080730
  Transmission Date: 20101027
  Serious: No
  Sender: FDA-Public Use
  Company Number: US-PFIZER INC-2008064016

PATIENT
  Sex: Female

DRUGS (2)
  1. SPIRONOLACTONE [Suspect]
     Indication: EARLY MENARCHE
     Dates: start: 20080101
  2. SPIRONOLACTONE [Suspect]
     Indication: OFF LABEL USE

REACTIONS (3)
  - DIZZINESS [None]
  - OFF LABEL USE [None]
  - VISION BLURRED [None]
